FAERS Safety Report 7617663-X (Version None)
Quarter: 2011Q3

REPORT INFORMATION
  Report Type: 
  Country: None (occurrence: None)
  Receive Date: 20110718
  Receipt Date: 20110708
  Transmission Date: 20111222
  Serious: Yes (Hospitalization)
  Sender: FDA-Public Use
  Company Number: US-GENZYME-CAMP-1001741

PATIENT
  Sex: Female
  Weight: 66.213 kg

DRUGS (2)
  1. ALEMTUZUMAB [Suspect]
     Indication: MULTIPLE SCLEROSIS
     Dosage: UNK
     Dates: start: 20100101, end: 20100101
  2. ALEMTUZUMAB [Suspect]
     Dosage: UNK
     Dates: start: 20110620, end: 20110622

REACTIONS (1)
  - SYNCOPE [None]
